FAERS Safety Report 5834330-3 (Version None)
Quarter: 2008Q3

REPORT INFORMATION
  Report Type: 
  Country: None (occurrence: None)
  Receive Date: 20080805
  Receipt Date: 20080725
  Transmission Date: 20090109
  Serious: Yes (Other)
  Sender: FDA-Public Use
  Company Number: CL-PFIZER INC-2008056762

PATIENT
  Sex: Female
  Weight: 55 kg

DRUGS (6)
  1. SERTRALINE [Suspect]
     Indication: OBSESSIVE-COMPULSIVE DISORDER
     Route: 048
  2. SERTRALINE [Suspect]
     Indication: PHOBIA
  3. SERTRALINE [Suspect]
     Indication: PANIC DISORDER
  4. LIVIAL [Concomitant]
     Route: 048
  5. RAVOTRIL [Concomitant]
     Dosage: DAILY DOSE:1MG
     Route: 048
  6. CYMBALTA [Concomitant]
     Route: 048

REACTIONS (6)
  - NERVOUS SYSTEM DISORDER [None]
  - NIGHT SWEATS [None]
  - NIGHTMARE [None]
  - OBSESSIVE THOUGHTS [None]
  - PERIPHERAL COLDNESS [None]
  - PHOBIA [None]
